FAERS Safety Report 13058026 (Version 1)
Quarter: 2016Q4

REPORT INFORMATION
  Report Type: Spontaneous
  Country: AU (occurrence: AU)
  Receive Date: 20161223
  Receipt Date: 20161223
  Transmission Date: 20170207
  Serious: Yes (Other)
  Sender: FDA-Public Use
  Company Number: PHHY2016AU174654

PATIENT
  Sex: Female

DRUGS (2)
  1. EVEROLIMUS [Suspect]
     Active Substance: EVEROLIMUS
     Indication: PRODUCT USED FOR UNKNOWN INDICATION
     Route: 065
  2. EXEMESTANE. [Suspect]
     Active Substance: EXEMESTANE
     Indication: PRODUCT USED FOR UNKNOWN INDICATION
     Route: 065

REACTIONS (10)
  - Alopecia [Unknown]
  - Diarrhoea [Unknown]
  - Platelet count decreased [Unknown]
  - Mucosal inflammation [Unknown]
  - Metastases to liver [Unknown]
  - Alveolitis [Unknown]
  - Malaise [Unknown]
  - Fatigue [Unknown]
  - Lymphadenopathy [Unknown]
  - Dyspnoea exertional [Unknown]
